FAERS Safety Report 8118989-6 (Version None)
Quarter: 2012Q1

REPORT INFORMATION
  Report Type: 
  Country: None (occurrence: None)
  Receive Date: 20120207
  Receipt Date: 20120206
  Transmission Date: 20120608
  Serious: Yes (Other)
  Sender: FDA-Public Use
  Company Number: US-PFIZER INC-2012032140

PATIENT
  Sex: Male

DRUGS (1)
  1. XANAX [Suspect]
     Dosage: UNK

REACTIONS (5)
  - DEPRESSION [None]
  - NERVOUS SYSTEM DISORDER [None]
  - CEREBROVASCULAR ACCIDENT [None]
  - PAIN [None]
  - SURGERY [None]
